FAERS Safety Report 7438244-7 (Version None)
Quarter: 2011Q2

REPORT INFORMATION
  Report Type: 
  Country: None (occurrence: None)
  Receive Date: 20110426
  Receipt Date: 20100215
  Transmission Date: 20111010
  Serious: No
  Sender: FDA-Public Use
  Company Number: US-BAYER-201014669NA

PATIENT
  Age: 19 Year
  Sex: Female

DRUGS (1)
  1. YAZ [Suspect]
     Indication: AMENORRHOEA
     Dosage: 1 DF, QD

REACTIONS (2)
  - WEIGHT DECREASED [None]
  - MOOD ALTERED [None]
